FAERS Safety Report 7290618-3 (Version None)
Quarter: 2011Q1

REPORT INFORMATION
  Report Type: 
  Country: None (occurrence: None)
  Receive Date: 20110214
  Receipt Date: 20110207
  Transmission Date: 20110831
  Serious: Yes (Hospitalization)
  Sender: FDA-Public Use
  Company Number: DE-JNJFOC-20110201960

PATIENT
  Age: 75 Year
  Sex: Female

DRUGS (3)
  1. TAVANIC [Suspect]
     Indication: INFLUENZA
     Dosage: 6 TABLETS ALTOGETHER
     Route: 048
  2. TAVANIC [Suspect]
     Indication: PYELONEPHRITIS
     Dosage: 6 TABLETS ALTOGETHER
     Route: 048
  3. TAVANIC [Suspect]
     Indication: SINUSITIS
     Dosage: 6 TABLETS ALTOGETHER
     Route: 048

REACTIONS (7)
  - PYREXIA [None]
  - THROMBOCYTOPENIA [None]
  - RENAL FAILURE [None]
  - DEPRESSED LEVEL OF CONSCIOUSNESS [None]
  - HEPATIC FAILURE [None]
  - LEUKOPENIA [None]
  - GENERAL PHYSICAL HEALTH DETERIORATION [None]
